FAERS Safety Report 7500392-0 (Version None)
Quarter: 2011Q2

REPORT INFORMATION
  Report Type: 
  Country: None (occurrence: None)
  Receive Date: 20110524
  Receipt Date: 20110131
  Transmission Date: 20111010
  Serious: No
  Sender: FDA-Public Use
  Company Number: US-BRISTOL-MYERS SQUIBB COMPANY-15499585

PATIENT
  Age: 63 Year
  Sex: Female

DRUGS (14)
  1. METFORMIN HCL [Concomitant]
     Dosage: 1DF=1 TABLET,METFORMIN HCL 1000MG TABS
     Route: 048
  2. GLIPIZIDE [Concomitant]
     Dosage: 2DF=2 TABLETS,GLIPIZIDE 10MG
     Route: 048
  3. LISINOPRIL [Suspect]
     Dosage: LISINOPRIL 20MG, 1DF=1 TABLET
     Route: 048
  4. ONGLYZA [Suspect]
     Dosage: 1DF=1 TABLET
     Route: 048
  5. NITROGLYCERIN TABS [Concomitant]
     Dosage: NITROGLYCERIN 0.4MG TABS.1DF=1 TABLET
     Route: 060
  6. BENEFIBER [Concomitant]
     Dosage: 1DF=1 TABLET
  7. LOVAZA [Concomitant]
     Dosage: 1DF=1 TABLET
  8. METOPROLOL TARTRATE [Suspect]
     Dosage: METOPROLOL TARTRATE 100MG TABS.1DF=1 TABLET
     Route: 048
  9. BUPROPION HYDROCHLORIDE [Concomitant]
  10. CRESTOR [Suspect]
     Dosage: CRESTOR 40MG 1DF=1 TABLET
     Route: 048
  11. CALTRATE + D [Concomitant]
     Dosage: 1DF=1 TABLET.CALTRATE 600+D
     Route: 048
  12. ASPIRIN [Concomitant]
     Dosage: 1DF=1 TABLET.ECOTRIN 325MG
     Route: 048
  13. MULTI-VITAMIN [Concomitant]
     Dosage: 1DF=1 TABLET
     Route: 048
  14. PLAVIX [Concomitant]
     Dosage: 1DF=1 TABLET.PLAVIX 75MG
     Route: 048

REACTIONS (1)
  - BREAST MASS [None]
